FAERS Safety Report 19056622 (Version 1)
Quarter: 2021Q1

REPORT INFORMATION
  Report Type: Spontaneous
  Country: US (occurrence: US)
  Receive Date: 20210325
  Receipt Date: 20210325
  Transmission Date: 20210420
  Serious: Yes (Hospitalization)
  Sender: FDA-Public Use
  Company Number: None

PATIENT
  Age: 33 Year
  Sex: Female
  Weight: 68 kg

DRUGS (9)
  1. DEXAMETHASONE 0MG [Suspect]
     Active Substance: DEXAMETHASONE
     Dates: end: 20190306
  2. MERCAPTOPURINE 0MG [Suspect]
     Active Substance: MERCAPTOPURINE
     Dates: end: 20190331
  3. ETOPOSIDE. [Suspect]
     Active Substance: ETOPOSIDE
     Dates: end: 20190708
  4. CYCLOPHOSPHAMIDE 0MG [Suspect]
     Active Substance: CYCLOPHOSPHAMIDE
     Dates: end: 20190422
  5. CYTARABINE 675MG [Suspect]
     Active Substance: CYTARABINE
     Dates: end: 20190712
  6. METHOTREXATE 12.5MG [Suspect]
     Active Substance: METHOTREXATE
     Dates: end: 20190708
  7. ONCASPAR [Suspect]
     Active Substance: PEGASPARGASE
     Dates: end: 20190712
  8. DAUNORUBICIN 0MG [Suspect]
     Active Substance: DAUNORUBICIN
     Dates: end: 20190307
  9. VINCRISTINE SULFATE 0MG [Suspect]
     Active Substance: VINCRISTINE SULFATE
     Dates: end: 20190307

REACTIONS (10)
  - Blood pressure decreased [None]
  - Appetite disorder [None]
  - Poor quality sleep [None]
  - Depression [None]
  - Suicidal ideation [None]
  - Flushing [None]
  - Febrile neutropenia [None]
  - Major depression [None]
  - Throat tightness [None]
  - Body temperature increased [None]

NARRATIVE: CASE EVENT DATE: 20190708
